FAERS Safety Report 9608600 (Version 4)
Quarter: 2014Q2

REPORT INFORMATION
  Report Type: Spontaneous
  Country: US (occurrence: US)
  Receive Date: 20131009
  Receipt Date: 20140603
  Transmission Date: 20141212
  Serious: Yes (Other)
  Sender: FDA-Public Use
  Company Number: US-PFIZER INC-2013286578

PATIENT
  Age: 57 Year
  Sex: Female
  Weight: 53.97 kg

DRUGS (7)
  1. LEVOXYL [Suspect]
     Indication: HYPOTHYROIDISM
     Dosage: 0.125 MG, 1X/DAY
     Route: 048
     Dates: start: 1968, end: 201309
  2. CYTOMEL [Suspect]
     Indication: HYPOTHYROIDISM
     Dosage: 5 UG, 1X/DAY
     Dates: start: 1998
  3. CYTOMEL [Suspect]
     Dosage: 5 UG, 1X/DAY
  4. CYTOMEL [Suspect]
     Dosage: UNK
  5. CYTOMEL [Suspect]
     Dosage: UNK
  6. SYNTHROID [Suspect]
     Indication: HYPOTHYROIDISM
     Dosage: 0.125 MG, 1X/DAY
     Dates: start: 1988
  7. SYNTHROID [Suspect]
     Dosage: 0.125 MG, 1X/DAY
     Dates: start: 20131002

REACTIONS (10)
  - Breast cancer female [Unknown]
  - Disease recurrence [Unknown]
  - Drug ineffective [Unknown]
  - Nausea [Unknown]
  - Peripheral coldness [Unknown]
  - Feeling abnormal [Unknown]
  - Discomfort [Unknown]
  - Heart rate decreased [Unknown]
  - Asthenia [Unknown]
  - Abdominal distension [Unknown]
